FAERS Safety Report 9416073 (Version 1)
Quarter: 2013Q3

REPORT INFORMATION
  Report Type: Spontaneous
  Country: US (occurrence: None)
  Receive Date: 20130717
  Receipt Date: 20130717
  Transmission Date: 20140515
  Serious: Yes (Other)
  Sender: FDA-Public Use
  Company Number: 2013AP006580

PATIENT
  Age: 58 Year
  Sex: Female

DRUGS (9)
  1. ALENDRONATE SODIUM TABLETS [Suspect]
     Indication: OSTEOPOROSIS
     Dates: start: 1998, end: 2003
  2. IBANDRONATE SODIUM [Suspect]
     Indication: OSTEOPOROSIS
     Dates: start: 2006, end: 2008
  3. ZOLEDRONIC ACID [Suspect]
     Indication: OSTEOPOROSIS
     Route: 041
     Dates: start: 200905
  4. ESTROGEN NOS [Suspect]
     Indication: HORMONE REPLACEMENT THERAPY
     Dates: start: 2000, end: 2007
  5. TERIPARATIDE [Concomitant]
  6. TRANDOLAPRIL [Concomitant]
  7. CORTICOSTEROID NOS [Concomitant]
  8. ANALGESICS [Concomitant]
  9. NSAID^S [Concomitant]

REACTIONS (4)
  - Hip fracture [None]
  - Atypical fracture [None]
  - Atypical femur fracture [None]
  - Pubis fracture [None]
